FAERS Safety Report 14952527 (Version 1)
Quarter: 2018Q2

REPORT INFORMATION
  Report Type: Spontaneous
  Country: JP (occurrence: JP)
  Receive Date: 20180530
  Receipt Date: 20180530
  Transmission Date: 20180711
  Serious: Yes (Other)
  Sender: FDA-Public Use
  Company Number: JP-PFIZER INC-2018213592

PATIENT
  Age: 58 Year
  Sex: Female

DRUGS (2)
  1. ZYVOX [Suspect]
     Active Substance: LINEZOLID
     Dosage: UNK
  2. DELTYBA [Suspect]
     Active Substance: DELAMANID
     Indication: TUBERCULOSIS
     Dosage: 200 MG, DAILY
     Route: 048
     Dates: start: 20180312

REACTIONS (3)
  - Paraesthesia [Unknown]
  - Electrocardiogram QT prolonged [Unknown]
  - Throat irritation [Unknown]

NARRATIVE: CASE EVENT DATE: 20180418
